FAERS Safety Report 7579446-9 (Version None)
Quarter: 2011Q2

REPORT INFORMATION
  Report Type: 
  Country: None (occurrence: None)
  Receive Date: 20110629
  Receipt Date: 20110616
  Transmission Date: 20111010
  Serious: No
  Sender: FDA-Public Use
  Company Number: US-BIOGENIDEC-2011BI022433

PATIENT
  Age: 34 Year
  Sex: Female

DRUGS (2)
  1. AVONEX [Suspect]
     Indication: MULTIPLE SCLEROSIS
     Route: 030
     Dates: start: 20101001
  2. IV TREATMENTS (NOS) [Concomitant]
     Indication: MULTIPLE SCLEROSIS

REACTIONS (5)
  - ABDOMINAL DISCOMFORT [None]
  - BONE PAIN [None]
  - SLEEP TERROR [None]
  - INFLUENZA LIKE ILLNESS [None]
  - RHINORRHOEA [None]
